FAERS Safety Report 8381075-4 (Version None)
Quarter: 2012Q2

REPORT INFORMATION
  Report Type: 
  Country: None (occurrence: None)
  Receive Date: 20120523
  Receipt Date: 20120516
  Transmission Date: 20120825
  Serious: Yes (Hospitalization)
  Sender: FDA-Public Use
  Company Number: FR-BRISTOL-MYERS SQUIBB COMPANY-16598740

PATIENT
  Age: 79 Year
  Sex: Female

DRUGS (3)
  1. CLONAZEPAM [Concomitant]
  2. ESCITALOPRAM [Concomitant]
  3. IPILIMUMAB [Suspect]
     Indication: METASTATIC MALIGNANT MELANOMA
     Route: 042
     Dates: start: 20120502

REACTIONS (1)
  - PYREXIA [None]
